FAERS Safety Report 7561479-X (Version None)
Quarter: 2011Q2

REPORT INFORMATION
  Report Type: 
  Country: None (occurrence: None)
  Receive Date: 20110620
  Receipt Date: 20110620
  Transmission Date: 20111010
  Serious: Yes (Disabling)
  Sender: FDA-Public Use
  Company Number: None

PATIENT
  Sex: Female
  Weight: 104.3273 kg

DRUGS (3)
  1. TOPAMAX [Concomitant]
  2. GLYBURIDE [Suspect]
     Indication: MUSCLE SPASMS
     Dosage: 1MG Q HS PO
     Route: 048
     Dates: start: 20110514, end: 20110619
  3. ROPINIROLE [Suspect]

REACTIONS (7)
  - MIGRAINE [None]
  - PHYSICAL PRODUCT LABEL ISSUE [None]
  - HUNGER [None]
  - WEIGHT INCREASED [None]
  - BEDRIDDEN [None]
  - PRODUCT QUALITY ISSUE [None]
  - DIARRHOEA [None]
